FAERS Safety Report 4934511-7 (Version None)
Quarter: 2006Q1

REPORT INFORMATION
  Report Type: 
  Country: None (occurrence: None)
  Receive Date: 20060307
  Receipt Date: 20050922
  Transmission Date: 20060701
  Serious: No
  Sender: FDA-Public Use
  Company Number: US-BRISTOL-MYERS SQUIBB COMPANY-13118781

PATIENT
  Sex: Female
  Weight: 62 kg

DRUGS (4)
  1. VAGISTAT-1 [Suspect]
     Indication: VULVOVAGINAL MYCOTIC INFECTION
     Route: 067
     Dates: start: 20050920, end: 20050920
  2. AMOXICILLIN + CLAVULANATE [Concomitant]
  3. PRILOSEC [Concomitant]
  4. ZOLOFT [Concomitant]

REACTIONS (6)
  - DYSPNOEA [None]
  - HEADACHE [None]
  - MUSCLE SPASMS [None]
  - PHARYNGEAL OEDEMA [None]
  - VAGINAL BURNING SENSATION [None]
  - VAGINAL SWELLING [None]
